FAERS Safety Report 23113271 (Version 1)
Quarter: 2023Q4

REPORT INFORMATION
  Report Type: Report from Study
  Country: US (occurrence: None)
  Receive Date: 20231027
  Receipt Date: 20231027
  Transmission Date: 20240109
  Serious: Yes (Other)
  Sender: FDA-Public Use
  Company Number: 2023A241081

PATIENT
  Age: 28358 Day
  Sex: Male

DRUGS (1)
  1. CALQUENCE [Suspect]
     Active Substance: ACALABRUTINIB
     Indication: Chronic lymphocytic leukaemia
     Route: 048
     Dates: start: 20230816

REACTIONS (4)
  - Carotid artery occlusion [Unknown]
  - Pain in extremity [Unknown]
  - Gait inability [Unknown]
  - Fatigue [Unknown]

NARRATIVE: CASE EVENT DATE: 20231020
